FAERS Safety Report 8770113 (Version 3)
Quarter: 2012Q4

REPORT INFORMATION
  Report Type: 
  Country: JP (occurrence: JP)
  Receive Date: 20120906
  Receipt Date: 20120925
  Transmission Date: 20130627
  Serious: Yes (Other)
  Sender: FDA-Public Use
  Company Number: JP-PFIZER INC-2012215351

PATIENT
  Age: 74 Year

DRUGS (1)
  1. ZYVOX [Suspect]
     Dosage: 600 mg, 2x/day
     Route: 041

REACTIONS (1)
  - Anuria [Unknown]
